FAERS Safety Report 5613765-8 (Version None)
Quarter: 2008Q1

REPORT INFORMATION
  Report Type: 
  Country: None (occurrence: None)
  Receive Date: 20080205
  Receipt Date: 20080122
  Transmission Date: 20080703
  Serious: Yes (Other)
  Sender: FDA-Public Use
  Company Number: US-AMGEN-US261864

PATIENT
  Sex: Female

DRUGS (1)
  1. ENBREL [Suspect]
     Indication: RHEUMATOID ARTHRITIS
     Route: 065
     Dates: start: 20071011

REACTIONS (4)
  - ABDOMINAL PAIN UPPER [None]
  - DYSPHONIA [None]
  - HYPOAESTHESIA [None]
  - PARAESTHESIA [None]
